FAERS Safety Report 7213825-4 (Version None)
Quarter: 2011Q1

REPORT INFORMATION
  Report Type: 
  Country: None (occurrence: None)
  Receive Date: 20110106
  Receipt Date: 20101221
  Transmission Date: 20110831
  Serious: Yes (Other)
  Sender: FDA-Public Use
  Company Number: PHHY2010CA85515

PATIENT
  Sex: Female

DRUGS (10)
  1. ALISKIREN [Suspect]
     Dosage: UNK
     Route: 048
     Dates: start: 20100915, end: 20100921
  2. PANTOLOC [Concomitant]
     Dosage: 40 MG, UNK
  3. NITRO-DUR [Concomitant]
     Dosage: 0.6 MG, UNK
  4. VITAMIN D [Concomitant]
     Dosage: UNKNOWN
  5. LIPITOR [Concomitant]
     Dosage: 20 MG, UNK
  6. PLAVIX [Concomitant]
     Dosage: 75 MG, UNK
  7. NITROGLYCERIN [Concomitant]
     Route: 060
  8. ASPIRIN [Concomitant]
     Dosage: 80 MG
  9. MONOCOR [Concomitant]
     Dosage: 1.25 MG, UNK
  10. ACETAMINOPHEN [Concomitant]

REACTIONS (1)
  - MYOCARDIAL INFARCTION [None]
